FAERS Safety Report 12094801 (Version 11)
Quarter: 2020Q2

REPORT INFORMATION
  Report Type: Report from Study
  Country: CA (occurrence: CA)
  Receive Date: 20160219
  Receipt Date: 20200504
  Transmission Date: 20200713
  Serious: Yes (Other)
  Sender: FDA-Public Use
  Company Number: CA-TAKEDA-2016TUS002570

PATIENT
  Age: 68 Year
  Sex: Female

DRUGS (23)
  1. VEDOLIZUMAB [Suspect]
     Active Substance: VEDOLIZUMAB
     Dosage: 300 MILLIGRAM
     Route: 042
  2. BIOCAL D [Concomitant]
     Dosage: 500 MILLIGRAM
  3. BENADRYL [Concomitant]
     Active Substance: DIPHENHYDRAMINE HYDROCHLORIDE
     Dosage: UNK
  4. ENTOCORT [Concomitant]
     Active Substance: BUDESONIDE
     Dosage: 3 MILLIGRAM, TID
  5. EPIPEN [Concomitant]
     Active Substance: EPINEPHRINE
     Dosage: UNK
  6. PROLIA [Concomitant]
     Active Substance: DENOSUMAB
     Dosage: 60 MILLIGRAM, 2/WEEK
  7. BIOCAL D [Concomitant]
     Dosage: 400 INTERNATIONAL UNIT, BID
  8. VEDOLIZUMAB [Suspect]
     Active Substance: VEDOLIZUMAB
     Dosage: 300 MILLIGRAM
     Route: 042
  9. VEDOLIZUMAB [Suspect]
     Active Substance: VEDOLIZUMAB
     Dosage: 300 MILLIGRAM
     Route: 042
  10. SYNTHROID [Concomitant]
     Active Substance: LEVOTHYROXINE SODIUM
     Dosage: 0.125 MILLIGRAM, QD
  11. ACETAMINOPHEN. [Concomitant]
     Active Substance: ACETAMINOPHEN
     Dosage: 500 MILLIGRAM, QID
  12. MYOFLEX                            /00021207/ [Concomitant]
     Dosage: UNK
  13. VEDOLIZUMAB [Suspect]
     Active Substance: VEDOLIZUMAB
     Indication: CROHN^S DISEASE
     Dosage: 300 MILLIGRAM
     Route: 042
     Dates: start: 20150716
  14. VEDOLIZUMAB [Suspect]
     Active Substance: VEDOLIZUMAB
     Dosage: 300 MILLIGRAM
     Route: 042
  15. PENTASA [Concomitant]
     Active Substance: MESALAMINE
     Dosage: 500 MILLIGRAM, BID
  16. NEXIUM [Concomitant]
     Active Substance: ESOMEPRAZOLE MAGNESIUM
     Dosage: 40 MILLIGRAM, BID
  17. VOLTAREN [Concomitant]
     Active Substance: DICLOFENAC SODIUM
     Dosage: UNK
  18. VENTOLIN [Concomitant]
     Active Substance: ALBUTEROL SULFATE
     Dosage: 100 MILLIGRAM
  19. VITAMIN B12 [Concomitant]
     Active Substance: CYANOCOBALAMIN
     Dosage: 1000 MICROGRAM, MONTHLY
     Route: 050
  20. NYSTATIN. [Concomitant]
     Active Substance: NYSTATIN
     Dosage: UNK
  21. NASONEX [Concomitant]
     Active Substance: MOMETASONE FUROATE
     Dosage: 500 MILLIGRAM, QD
  22. LYRICA [Concomitant]
     Active Substance: PREGABALIN
     Dosage: 25 MILLIGRAM, QD
  23. VIBRAMYCINE [Concomitant]
     Dosage: UNK
     Dates: start: 20160216, end: 20160226

REACTIONS (16)
  - Pulmonary congestion [Unknown]
  - Pyrexia [Unknown]
  - Bronchitis [Recovered/Resolved]
  - Pain [Unknown]
  - Fungal pharyngitis [Recovered/Resolved]
  - Pneumonia [Recovered/Resolved]
  - Diarrhoea [Unknown]
  - Upper respiratory tract infection [Unknown]
  - Productive cough [Not Recovered/Not Resolved]
  - Respiratory tract infection [Unknown]
  - Off label use [Unknown]
  - Sinusitis [Unknown]
  - Sputum discoloured [Recovering/Resolving]
  - Fall [Unknown]
  - Pain in extremity [Unknown]
  - Influenza [Recovered/Resolved]

NARRATIVE: CASE EVENT DATE: 20150716
